FAERS Safety Report 8339600-5 (Version None)
Quarter: 2012Q2

REPORT INFORMATION
  Report Type: 
  Country: None (occurrence: None)
  Receive Date: 20120507
  Receipt Date: 20120502
  Transmission Date: 20120825
  Serious: Yes (Death, Other)
  Sender: FDA-Public Use
  Company Number: PHHY2010CA70597

PATIENT
  Sex: Female

DRUGS (8)
  1. ZOFRAN [Concomitant]
  2. EXJADE [Suspect]
     Indication: MYELODYSPLASTIC SYNDROME
     Dosage: 1500 MG, DAILY
     Route: 048
     Dates: start: 20100501, end: 20101201
  3. VIDAZA [Concomitant]
  4. MEGACE [Concomitant]
  5. EXJADE [Suspect]
     Dosage: 1500 MG, DAILY
     Route: 048
     Dates: end: 20120304
  6. EXJADE [Suspect]
     Indication: IRON OVERLOAD
     Dosage: 4 DF, UNK
     Route: 048
  7. SEPTRA [Concomitant]
  8. BLOOD TRANSFUSION, AUXILIARY PRODUCTS [Concomitant]

REACTIONS (5)
  - MALAISE [None]
  - RENAL DISORDER [None]
  - DISEASE PROGRESSION [None]
  - BLOOD CREATININE INCREASED [None]
  - FEELING ABNORMAL [None]
